FAERS Safety Report 16941237 (Version 1)
Quarter: 2019Q4

REPORT INFORMATION
  Report Type: Spontaneous
  Country: US (occurrence: US)
  Receive Date: 20191021
  Receipt Date: 20191021
  Transmission Date: 20200122
  Serious: Yes (Hospitalization)
  Sender: FDA-Public Use
  Company Number: US-BRISTOL-MYERS SQUIBB COMPANY-BMS-2019-099363

PATIENT
  Sex: Female

DRUGS (1)
  1. SPRYCEL [Suspect]
     Active Substance: DASATINIB
     Indication: ESSENTIAL THROMBOCYTHAEMIA
     Dosage: 50 MILLIGRAM, QD
     Route: 048
     Dates: start: 20190914

REACTIONS (2)
  - Hospitalisation [Unknown]
  - Intentional product use issue [Unknown]
